FAERS Safety Report 7633149-0 (Version None)
Quarter: 2011Q3

REPORT INFORMATION
  Report Type: 
  Country: None (occurrence: None)
  Receive Date: 20110725
  Receipt Date: 20110714
  Transmission Date: 20111222
  Serious: No
  Sender: FDA-Public Use
  Company Number: BR-ROCHE-778535

PATIENT
  Sex: Female
  Weight: 63.8 kg

DRUGS (1)
  1. ISOTRETINOIN [Suspect]
     Indication: ACNE
     Route: 048
     Dates: start: 20081202, end: 20090701

REACTIONS (2)
  - NO ADVERSE EVENT [None]
  - PREGNANCY [None]
